FAERS Safety Report 4524849-X (Version None)
Quarter: 2004Q4

REPORT INFORMATION
  Report Type: 
  Country: None (occurrence: None)
  Receive Date: 20041208
  Receipt Date: 20041123
  Transmission Date: 20050328
  Serious: Yes (Other)
  Sender: FDA-Public Use
  Company Number: 210086

PATIENT
  Age: 57 Year
  Sex: Female
  Weight: 62.6 kg

DRUGS (10)
  1. XOLAIR [Suspect]
     Indication: ASTHMA
     Dosage: 375 MG, Q2W, SUBCUTANEOUS
     Route: 058
     Dates: start: 20040729
  2. SPIRIVA [Concomitant]
  3. PRINZIDE [Concomitant]
  4. MINOCYLCLINE (MINOCYCLINE) [Concomitant]
  5. SINGULAIR [Concomitant]
  6. ZANTAC [Concomitant]
  7. ADVAIR (SALMETEROL XINAFOATE, FLUTICASONE PROPIONATE) [Concomitant]
  8. MAXAIR [Concomitant]
  9. ALBUTEROL (ALBUTEROL SULFATE, ALBUTEROL) [Concomitant]
  10. EPIPEN (EPINEPHRINE) [Concomitant]

REACTIONS (9)
  - DRY EYE [None]
  - EYE OEDEMA [None]
  - FUNGAL INFECTION [None]
  - HYPERSENSITIVITY [None]
  - JOINT SWELLING [None]
  - OEDEMA PERIPHERAL [None]
  - PNEUMONITIS [None]
  - SWELLING FACE [None]
  - URTICARIA [None]
